FAERS Safety Report 18690150 (Version 2)
Quarter: 2021Q1

REPORT INFORMATION
  Report Type: Report from Study
  Country: None (occurrence: AU)
  Receive Date: 20201231
  Receipt Date: 20210215
  Transmission Date: 20210419
  Serious: Yes (Hospitalization, Other)
  Sender: FDA-Public Use
  Company Number: AU-ABBVIE-20K-008-3711877-00

PATIENT
  Age: 87 Year
  Sex: Male

DRUGS (2)
  1. DUODOPA [Suspect]
     Active Substance: CARBIDOPA\LEVODOPA
     Indication: PARKINSON^S DISEASE
     Dosage: 100ML
     Route: 050
     Dates: start: 20190703
  2. DUODOPA [Suspect]
     Active Substance: CARBIDOPA\LEVODOPA

REACTIONS (3)
  - Femoral neck fracture [Unknown]
  - Fall [Recovering/Resolving]
  - Hallucination [Unknown]

NARRATIVE: CASE EVENT DATE: 20201225
